FAERS Safety Report 12885260 (Version 6)
Quarter: 2017Q1

REPORT INFORMATION
  Report Type: Spontaneous
  Country: CA (occurrence: CA)
  Receive Date: 20161026
  Receipt Date: 20170209
  Transmission Date: 20170428
  Serious: Yes (Hospitalization, Other)
  Sender: FDA-Public Use
  Company Number: CA-PFIZER INC-2016498178

PATIENT
  Age: 26 Year
  Sex: Male

DRUGS (5)
  1. SOMAVERT [Suspect]
     Active Substance: PEGVISOMANT
     Dosage: 15 MG, 2X/DAY
     Route: 058
  2. OCTREOTIDE. [Concomitant]
     Active Substance: OCTREOTIDE
     Dosage: UNK, MONTHLY
  3. DILANTIN /00017402/ [Concomitant]
     Dosage: 400 MG, 4X/DAY
     Route: 048
  4. SOMAVERT [Suspect]
     Active Substance: PEGVISOMANT
     Indication: ACROMEGALY
     Dosage: 10 MG, DAILY
     Route: 058
     Dates: start: 20160526, end: 20161102
  5. SOMAVERT [Suspect]
     Active Substance: PEGVISOMANT
     Dosage: 15 MG, 1X/DAY
     Route: 058
     Dates: start: 20161111

REACTIONS (5)
  - Emotional distress [Unknown]
  - Memory impairment [Unknown]
  - Injection site bruising [Not Recovered/Not Resolved]
  - Pituitary tumour [Unknown]
  - Seizure [Unknown]
